FAERS Safety Report 4521307-3 (Version None)
Quarter: 2004Q4

REPORT INFORMATION
  Report Type: 
  Country: None (occurrence: None)
  Receive Date: 20041208
  Receipt Date: 20041201
  Transmission Date: 20050328
  Serious: Yes (Other)
  Sender: FDA-Public Use
  Company Number: PHEH2004US12835

PATIENT
  Age: 53 Year
  Sex: Female
  Weight: 129 kg

DRUGS (5)
  1. TRILEPTAL [Suspect]
     Dosage: 900 MG, QD
  2. ESCITALOPRAM [Suspect]
     Dosage: 15 MG, QD
     Route: 048
     Dates: start: 20040401
  3. CLONAZEPAM [Suspect]
     Dosage: 8 MG, QD
  4. ARIPIPRAZOLE [Suspect]
     Dosage: 5 MG, QD
  5. SIMVASTATIN [Concomitant]
     Dosage: 20 MG, QD

REACTIONS (2)
  - LIMB DISCOMFORT [None]
  - THROMBOPHLEBITIS [None]
